FAERS Safety Report 7415616-8 (Version None)
Quarter: 2011Q2

REPORT INFORMATION
  Report Type: 
  Country: None (occurrence: None)
  Receive Date: 20110406
  Receipt Date: 20110325
  Transmission Date: 20111010
  Serious: Yes (Other)
  Sender: FDA-Public Use
  Company Number: 201110322

PATIENT
  Sex: Male

DRUGS (2)
  1. MORPHNE [Concomitant]
  2. LIORESAL [Suspect]
     Indication: MUSCLE SPASTICITY
     Dosage: DAILY, INTRATHECAL
     Route: 037

REACTIONS (3)
  - UNRESPONSIVE TO STIMULI [None]
  - SOMNOLENCE [None]
  - PULSE ABSENT [None]
